FAERS Safety Report 6744139-4 (Version None)
Quarter: 2010Q2

REPORT INFORMATION
  Report Type: 
  Country: None (occurrence: None)
  Receive Date: 20100527
  Receipt Date: 20100525
  Transmission Date: 20101027
  Serious: Yes (Life-Threatening)
  Sender: FDA-Public Use
  Company Number: B0657117A

PATIENT
  Sex: Female

DRUGS (1)
  1. AUGMENTIN '125' [Suspect]
     Indication: DRUG USE FOR UNKNOWN INDICATION
     Dosage: 500MG SINGLE DOSE
     Route: 048
     Dates: start: 20100201, end: 20100201

REACTIONS (4)
  - ANGIOEDEMA [None]
  - APHONIA [None]
  - PARAESTHESIA ORAL [None]
  - PRURITUS [None]
